FAERS Safety Report 20710640 (Version 3)
Quarter: 2022Q2

REPORT INFORMATION
  Report Type: Spontaneous
  Country: FR (occurrence: FR)
  Receive Date: 20220414
  Receipt Date: 20220511
  Transmission Date: 20220720
  Serious: Yes (Death, Other)
  Sender: FDA-Public Use
  Company Number: FR-LUPIN PHARMACEUTICALS INC.-2022-05600

PATIENT
  Age: 11 Month
  Sex: Male

DRUGS (2)
  1. TRAMADOL HYDROCHLORIDE [Suspect]
     Active Substance: TRAMADOL HYDROCHLORIDE
     Indication: Product used for unknown indication
     Dosage: UNK (TABLET)
     Route: 064
  2. TRAMADOL HYDROCHLORIDE [Suspect]
     Active Substance: TRAMADOL HYDROCHLORIDE
     Dosage: UNK (TAKEN 60 TO 90ML CONTAINING TABLETS OF TRAMADOL)
     Route: 048

REACTIONS (9)
  - Respiratory depression [Fatal]
  - Coma [Fatal]
  - Seizure [Fatal]
  - Cardiac disorder [Fatal]
  - Cyanosis [Fatal]
  - Visceral congestion [Fatal]
  - Accidental exposure to product by child [Fatal]
  - Toxicity to various agents [Fatal]
  - Foetal exposure during pregnancy [Unknown]
